FAERS Safety Report 7270236-3 (Version None)
Quarter: 2011Q1

REPORT INFORMATION
  Report Type: 
  Country: None (occurrence: None)
  Receive Date: 20110125
  Receipt Date: 20110111
  Transmission Date: 20110831
  Serious: No
  Sender: FDA-Public Use
  Company Number: 016951

PATIENT
  Sex: Female

DRUGS (9)
  1. LACOSAMIDE [Suspect]
     Indication: EPILEPSY
     Dosage: (100 MG BID ORAL) ; (ORAL)
     Route: 048
     Dates: start: 20100709, end: 20100723
  2. LACOSAMIDE [Suspect]
     Indication: PARTIAL SEIZURES
     Dosage: (100 MG BID ORAL) ; (ORAL)
     Route: 048
     Dates: start: 20100709, end: 20100723
  3. LACOSAMIDE [Suspect]
     Indication: EPILEPSY
     Dosage: (100 MG BID ORAL) ; (ORAL)
     Route: 048
     Dates: start: 20100801, end: 20100808
  4. LACOSAMIDE [Suspect]
     Indication: PARTIAL SEIZURES
     Dosage: (100 MG BID ORAL) ; (ORAL)
     Route: 048
     Dates: start: 20100801, end: 20100808
  5. ASPIRIN [Concomitant]
  6. DILANTIN [Concomitant]
  7. PHENYTOIN [Concomitant]
  8. CLOBAZAM [Concomitant]
  9. SABRIL [Concomitant]

REACTIONS (6)
  - OEDEMA MOUTH [None]
  - OROPHARYNGEAL BLISTERING [None]
  - LYMPHADENITIS [None]
  - DRUG HYPERSENSITIVITY [None]
  - LIP BLISTER [None]
  - TONGUE BLISTERING [None]
